FAERS Safety Report 25356481 (Version 2)
Quarter: 2025Q3

REPORT INFORMATION
  Report Type: Spontaneous
  Country: US (occurrence: US)
  Receive Date: 20250526
  Receipt Date: 20250705
  Transmission Date: 20251021
  Serious: Yes (Other)
  Sender: ROCHE
  Company Number: US-ROCHE-10000288950

PATIENT
  Sex: Male

DRUGS (2)
  1. ESBRIET [Suspect]
     Active Substance: PIRFENIDONE
     Indication: Idiopathic interstitial pneumonia
     Route: 048
     Dates: start: 202011
  2. TYVASO DPI [Concomitant]
     Active Substance: TREPROSTINIL

REACTIONS (4)
  - Off label use [Unknown]
  - Dyspnoea at rest [Unknown]
  - Chest pain [Unknown]
  - Fatigue [Unknown]
